FAERS Safety Report 6256255-4 (Version None)
Quarter: 2009Q3

REPORT INFORMATION
  Report Type: 
  Country: None (occurrence: None)
  Receive Date: 20090706
  Receipt Date: 20090526
  Transmission Date: 20100115
  Serious: No
  Sender: FDA-Public Use
  Company Number: A0786134A

PATIENT
  Age: 68 Year
  Sex: Female

DRUGS (5)
  1. ADVAIR HFA [Suspect]
     Indication: ASTHMA
     Dosage: 2PUFF TWICE PER DAY
     Route: 055
     Dates: start: 20090201
  2. VENTOLIN [Concomitant]
  3. ACCOLATE [Concomitant]
  4. LEVAQUIN [Concomitant]
  5. AVAPRO [Concomitant]

REACTIONS (1)
  - RESPIRATORY DISORDER [None]
